FAERS Safety Report 5451059-4 (Version None)
Quarter: 2007Q3

REPORT INFORMATION
  Report Type: 
  Country: None (occurrence: None)
  Receive Date: 20070911
  Receipt Date: 20070827
  Transmission Date: 20080115
  Serious: Yes (Other)
  Sender: FDA-Public Use
  Company Number: 060001M07CAN

PATIENT
  Sex: Female

DRUGS (1)
  1. SEROPHENE [Suspect]
     Indication: ASSISTED FERTILISATION
     Dosage: 2 DOSAGE FORMS, ORAL
     Route: 048

REACTIONS (2)
  - ABORTION SPONTANEOUS [None]
  - DRUG EXPOSURE DURING PREGNANCY [None]
